FAERS Safety Report 7585260-0 (Version None)
Quarter: 2011Q3

REPORT INFORMATION
  Report Type: 
  Country: None (occurrence: None)
  Receive Date: 20110701
  Receipt Date: 20110622
  Transmission Date: 20111222
  Serious: Yes (Hospitalization)
  Sender: FDA-Public Use
  Company Number: FR-BRISTOL-MYERS SQUIBB COMPANY-15863855

PATIENT
  Age: 74 Year
  Sex: Male

DRUGS (5)
  1. GLYBURIDE [Suspect]
     Indication: TYPE 2 DIABETES MELLITUS
     Dosage: 5 MG TABS
     Route: 048
     Dates: end: 20110119
  2. BIPRETERAX [Concomitant]
  3. LERCANIDIPINE [Concomitant]
  4. GLUCOPHAGE [Suspect]
     Indication: TYPE 2 DIABETES MELLITUS
     Dosage: FILM COATED
     Route: 048
     Dates: end: 20110119
  5. NEBIVOLOL HCL [Concomitant]

REACTIONS (3)
  - DECREASED APPETITE [None]
  - BRONCHITIS [None]
  - HYPOGLYCAEMIC COMA [None]
